FAERS Safety Report 9665281 (Version 2)
Quarter: 2014Q1

REPORT INFORMATION
  Report Type: Report from Study
  Country: US (occurrence: US)
  Receive Date: 20131101
  Receipt Date: 20140307
  Transmission Date: 20141002
  Serious: Yes (Other)
  Sender: FDA-Public Use
  Company Number: US-ROCHE-1297603

PATIENT
  Sex: Female

DRUGS (4)
  1. XOLAIR [Suspect]
     Indication: ASTHMA
     Route: 058
     Dates: start: 20121111
  2. ADVAIR DISKUS [Concomitant]
     Dosage: ^500-50 MCG/DOSE DISC WITH DEVICE^
     Route: 065
  3. ATROVENT HFA [Concomitant]
     Dosage: ^17 MCG/ACTUATION HFA AEROSOL INHALER^
     Route: 065
  4. VENTOLIN HFA [Concomitant]
     Dosage: ^90 MCG PER ACTUATION, WHILE AWAKE AS NEEDED^
     Route: 065

REACTIONS (6)
  - Myocardial infarction [Unknown]
  - Gastrooesophageal reflux disease [Unknown]
  - Rhinitis allergic [Unknown]
  - Obstructive airways disorder [Unknown]
  - Lung hyperinflation [Unknown]
  - Flatulence [Unknown]
